FAERS Safety Report 8993862 (Version 2)
Quarter: 2014Q2

REPORT INFORMATION
  Report Type: Spontaneous
  Country: US (occurrence: US)
  Receive Date: 20130102
  Receipt Date: 20140501
  Transmission Date: 20141212
  Serious: No
  Sender: FDA-Public Use
  Company Number: US-AMGEN-USASP2012083046

PATIENT
  Age: 48 Year
  Sex: Male

DRUGS (1)
  1. ENBREL [Suspect]
     Indication: RHEUMATOID ARTHRITIS
     Dosage: 50 MG, QWK
     Route: 065
     Dates: start: 20121115

REACTIONS (4)
  - Toothache [Not Recovered/Not Resolved]
  - Tooth fracture [Unknown]
  - Gingival abscess [Not Recovered/Not Resolved]
  - Tooth infection [Unknown]
